FAERS Safety Report 13053948 (Version 2)
Quarter: 2016Q4

REPORT INFORMATION
  Report Type: Report from Study
  Country: MX (occurrence: MX)
  Receive Date: 20161222
  Receipt Date: 20161223
  Transmission Date: 20170207
  Serious: Yes (Death, Hospitalization)
  Sender: FDA-Public Use
  Company Number: PHHY2016MX175814

PATIENT
  Age: 75 Year
  Sex: Male

DRUGS (1)
  1. ULTIBRO BREEZHALER [Suspect]
     Active Substance: GLYCOPYRRONIUM\INDACATEROL
     Indication: RESPIRATORY DISORDER
     Dosage: 1 DF (50 UG), QD
     Route: 055
     Dates: start: 20161018, end: 20161205

REACTIONS (4)
  - Product use issue [Recovered/Resolved]
  - Metastasis [Fatal]
  - Hepatic cancer [Fatal]
  - Dyspnoea [Unknown]

NARRATIVE: CASE EVENT DATE: 201611
